FAERS Safety Report 11467354 (Version 1)
Quarter: 2015Q3

REPORT INFORMATION
  Report Type: Spontaneous
  Country: US (occurrence: None)
  Receive Date: 20150903
  Receipt Date: 20150903
  Transmission Date: 20151125
  Serious: No
  Sender: FDA-Public Use
  Company Number: None

PATIENT
  Age: 5 Year
  Sex: Female
  Weight: 45.36 kg

DRUGS (1)
  1. SUPPRELIN LA [Suspect]
     Active Substance: HISTRELIN ACETATE

REACTIONS (5)
  - Hormone level abnormal [None]
  - Hair growth abnormal [None]
  - Device defective [None]
  - Breast enlargement [None]
  - Skin odour abnormal [None]

NARRATIVE: CASE EVENT DATE: 20150109
